FAERS Safety Report 9417814 (Version 1)
Quarter: 2013Q3

REPORT INFORMATION
  Report Type: Spontaneous
  Country: US (occurrence: US)
  Receive Date: 20130724
  Receipt Date: 20130724
  Transmission Date: 20140515
  Serious: No
  Sender: FDA-Public Use
  Company Number: US-BAUSCH-BL-2013-001497

PATIENT
  Age: 18 Year
  Sex: Female
  Weight: 56.75 kg

DRUGS (1)
  1. OPCON-A [Suspect]
     Indication: PRODUCT USED FOR UNKNOWN INDICATION
     Dosage: 1 DROP IN LEFT EYE, ONE TIME
     Route: 047
     Dates: start: 20130301, end: 20130301

REACTIONS (1)
  - Mydriasis [Recovered/Resolved]
